FAERS Safety Report 12922549 (Version 1)
Quarter: 2016Q4

REPORT INFORMATION
  Report Type: Spontaneous
  Country: CN (occurrence: CN)
  Receive Date: 20161109
  Receipt Date: 20161109
  Transmission Date: 20170207
  Serious: Yes (Other)
  Sender: FDA-Public Use
  Company Number: CN-ASTRAZENECA-2016SF17405

PATIENT
  Sex: Male
  Weight: 85 kg

DRUGS (4)
  1. ROSUVASTATIN CALCIUM. [Suspect]
     Active Substance: ROSUVASTATIN CALCIUM
     Indication: LIPIDS ABNORMAL
     Route: 048
     Dates: start: 20160513, end: 20160520
  2. ISOSORBIDE MONONITRATE. [Concomitant]
     Active Substance: ISOSORBIDE MONONITRATE
     Indication: CARDIOVASCULAR DISORDER
     Route: 041
     Dates: start: 20160513, end: 20160523
  3. ROSUVASTATIN CALCIUM. [Suspect]
     Active Substance: ROSUVASTATIN CALCIUM
     Indication: ENDOTHELIAL DYSFUNCTION
     Route: 048
     Dates: start: 20160513, end: 20160520
  4. ISOSORBIDE MONONITRATE. [Concomitant]
     Active Substance: ISOSORBIDE MONONITRATE
     Indication: CORONARY ARTERY DILATATION
     Route: 041
     Dates: start: 20160513, end: 20160523

REACTIONS (3)
  - Aspartate aminotransferase increased [Unknown]
  - Liver injury [Unknown]
  - Alanine aminotransferase increased [Unknown]
